FAERS Safety Report 25174315 (Version 1)
Quarter: 2025Q2

REPORT INFORMATION
  Report Type: Spontaneous
  Country: CA (occurrence: CA)
  Receive Date: 20250408
  Receipt Date: 20250408
  Transmission Date: 20250717
  Serious: Yes (Other)
  Sender: TEVA
  Company Number: CA-TEVA-VS-3317621

PATIENT
  Age: 31 Year
  Sex: Male

DRUGS (2)
  1. CONCERTA [Suspect]
     Active Substance: METHYLPHENIDATE HYDROCHLORIDE
     Indication: Attention deficit hyperactivity disorder
     Route: 065
  2. WEGOVY [Suspect]
     Active Substance: SEMAGLUTIDE
     Indication: Product used for unknown indication
     Route: 065

REACTIONS (7)
  - Intentional self-injury [Unknown]
  - Facial pain [Unknown]
  - Oropharyngeal pain [Unknown]
  - Eye pain [Unknown]
  - Panic disorder [Unknown]
  - Choking sensation [Unknown]
  - Emotional disorder [Unknown]
